FAERS Safety Report 19100101 (Version 4)
Quarter: 2021Q2

REPORT INFORMATION
  Report Type: Spontaneous
  Country: US (occurrence: US)
  Receive Date: 20210407
  Receipt Date: 20210614
  Transmission Date: 20210717
  Serious: No
  Sender: FDA-Public Use
  Company Number: US-ORGANON-O2103USA002014

PATIENT
  Age: 26 Year
  Sex: Female
  Weight: 57.14 kg

DRUGS (1)
  1. NEXPLANON [Suspect]
     Active Substance: ETONOGESTREL
     Dosage: 1 IMPLANT, APPROXIMATELY FOR 3?4 YEAS, LEFT UPPER ARM
     Route: 059

REACTIONS (7)
  - Device issue [Unknown]
  - Complication associated with device [Recovered/Resolved]
  - Device placement issue [Unknown]
  - No adverse event [Unknown]
  - Incorrect product administration duration [Unknown]
  - Device deployment issue [Unknown]
  - Complication of device removal [Unknown]

NARRATIVE: CASE EVENT DATE: 20210224
